FAERS Safety Report 15011037 (Version 4)
Quarter: 2020Q2

REPORT INFORMATION
  Report Type: Report from Study
  Country: BR (occurrence: BR)
  Receive Date: 20180614
  Receipt Date: 20200629
  Transmission Date: 20200713
  Serious: Yes (Other)
  Sender: FDA-Public Use
  Company Number: PHHY2018BR019571

PATIENT
  Age: 57 Year
  Sex: Female
  Weight: 80 kg

DRUGS (17)
  1. VENLAFAXINE [Concomitant]
     Active Substance: VENLAFAXINE HYDROCHLORIDE
     Indication: DEPRESSION
     Dosage: 1 DF, QD
     Route: 048
  2. COSENTYX [Suspect]
     Active Substance: SECUKINUMAB
     Dosage: 2 DF (150 MG), EVERY 15 DAYS
     Route: 065
     Dates: start: 20171229
  3. COSENTYX [Suspect]
     Active Substance: SECUKINUMAB
     Dosage: UNK
     Route: 065
     Dates: start: 20180307
  4. COSENTYX [Suspect]
     Active Substance: SECUKINUMAB
     Dosage: UNK
     Route: 065
     Dates: start: 20180412
  5. COSENTYX [Suspect]
     Active Substance: SECUKINUMAB
     Dosage: UNK
     Route: 065
     Dates: start: 20180426
  6. COSENTYX [Suspect]
     Active Substance: SECUKINUMAB
     Dosage: UNK
     Route: 065
     Dates: start: 20180512
  7. COSENTYX [Suspect]
     Active Substance: SECUKINUMAB
     Indication: PSORIATIC ARTHROPATHY
     Dosage: UNK, QW
     Route: 065
     Dates: start: 20171229
  8. MESALAZINE [Concomitant]
     Active Substance: MESALAMINE
     Indication: CROHN^S DISEASE
     Dosage: 6 DF, QD (400 MG, TABLET)
     Route: 048
  9. RIVOTRIL [Concomitant]
     Active Substance: CLONAZEPAM
     Indication: SLEEP DISORDER
     Dosage: 10 MG, QD
     Route: 065
  10. MESALAZINE [Concomitant]
     Active Substance: MESALAMINE
     Dosage: 1 DF, QD (SUPPOSITORY)
     Route: 054
  11. BUPROPION. [Concomitant]
     Active Substance: BUPROPION
     Indication: DEPRESSION
     Dosage: 125 MG, QD
     Route: 048
  12. BUPROPION. [Concomitant]
     Active Substance: BUPROPION
     Dosage: 150 MG, QD
     Route: 048
  13. COSENTYX [Suspect]
     Active Substance: SECUKINUMAB
     Dosage: UNK
     Route: 065
     Dates: start: 20180207
  14. COSENTYX [Suspect]
     Active Substance: SECUKINUMAB
     Dosage: UNK
     Route: 065
     Dates: start: 201805, end: 201805
  15. COSENTYX [Suspect]
     Active Substance: SECUKINUMAB
     Dosage: 2 DF, QMO (150 MG)
     Route: 058
  16. MESALAZINE [Concomitant]
     Active Substance: MESALAMINE
     Indication: COLITIS
     Dosage: 6 DF, TID (TABLET)
     Route: 048
  17. RIVOTRIL [Concomitant]
     Active Substance: CLONAZEPAM
     Indication: DEPRESSION
     Dosage: 2 MG, QD
     Route: 048

REACTIONS (19)
  - Wound [Recovered/Resolved]
  - Stress [Recovering/Resolving]
  - Ear discomfort [Recovering/Resolving]
  - Inflammation [Recovered/Resolved]
  - Alopecia [Recovered/Resolved]
  - Pruritus [Recovered/Resolved]
  - Haemorrhage [Recovered/Resolved]
  - Dry skin [Recovered/Resolved]
  - Pain in extremity [Not Recovered/Not Resolved]
  - Pharyngeal swelling [Recovering/Resolving]
  - Chapped lips [Recovered/Resolved]
  - Hypertension [Recovering/Resolving]
  - Headache [Recovering/Resolving]
  - Ear infection [Recovering/Resolving]
  - Inappropriate schedule of product administration [Unknown]
  - Deafness [Recovering/Resolving]
  - Oropharyngeal plaque [Recovering/Resolving]
  - Pain [Not Recovered/Not Resolved]
  - Wound complication [Recovered/Resolved]

NARRATIVE: CASE EVENT DATE: 201801
